FAERS Safety Report 8988327 (Version 1)
Quarter: 2012Q4

REPORT INFORMATION
  Report Type: Spontaneous
  Country: US (occurrence: None)
  Receive Date: 20121220
  Receipt Date: 20121220
  Transmission Date: 20130627
  Serious: Yes (Life-Threatening, Other)
  Sender: FDA-Public Use
  Company Number: None

PATIENT
  Age: 38 Year
  Sex: Female
  Weight: 81.65 kg

DRUGS (2)
  1. MONTELUKAST [Suspect]
     Indication: MULTIPLE ALLERGIES
     Route: 048
     Dates: start: 20121005, end: 20121218
  2. MONTELUKAST [Suspect]
     Indication: ASTHMA
     Route: 048
     Dates: start: 20121005, end: 20121218

REACTIONS (6)
  - Product substitution issue [None]
  - Chest discomfort [None]
  - Dyspnoea [None]
  - Heart rate increased [None]
  - Lung disorder [None]
  - Pain [None]
